FAERS Safety Report 19244077 (Version 2)
Quarter: 2021Q2

REPORT INFORMATION
  Report Type: Report from Study
  Country: None (occurrence: BR)
  Receive Date: 20210512
  Receipt Date: 20210525
  Transmission Date: 20210717
  Serious: Yes (Other)
  Sender: FDA-Public Use
  Company Number: BR-ABBVIE-21P-020-3899827-00

PATIENT
  Sex: Female
  Weight: 71 kg

DRUGS (6)
  1. SYNTHROID [Suspect]
     Active Substance: LEVOTHYROXINE SODIUM
     Indication: HYPOTHYROIDISM
     Dosage: IN THE MORNING, FASTING. HALF AN HOUR TO BEFORE EAT
     Route: 048
     Dates: start: 1997
  2. COVID?19 VACCINE NOS. [Concomitant]
     Active Substance: COVID-19 VACCINE NOS
     Indication: COVID-19 IMMUNISATION
     Dosage: SHE REPORTS THAT SHE TOOK THE SECOND DOSE OF COVID VACCINE.
     Route: 030
  3. DIOVAN HCT [Concomitant]
     Active Substance: HYDROCHLOROTHIAZIDE\VALSARTAN
     Indication: HYPERTENSION
     Dosage: RIGHT AFTER BREAKFAST, ONGOING; DAILY DOSE: 1 TABLET; DIOVAN HCT 80MG + 12,5 MG
     Route: 048
     Dates: start: 199711
  4. DIPYRONE [Concomitant]
     Active Substance: DIPYRONE
     Indication: PRODUCT USED FOR UNKNOWN INDICATION
  5. DAFLON [Concomitant]
     Indication: CARDIOVASCULAR DISORDER
     Dosage: 1 DRAGEE IN THE MORNING, DAFLON 1000 (DIOSMIN 900MG + MICRONIZED HESPERIDIN 100MG)
     Route: 048
     Dates: start: 2010
  6. PLASIL [Concomitant]
     Active Substance: METOCLOPRAMIDE HYDROCHLORIDE
     Indication: PRODUCT USED FOR UNKNOWN INDICATION

REACTIONS (7)
  - Hernia repair [Unknown]
  - Intestinal perforation [Unknown]
  - Hiatus hernia [Unknown]
  - Urticaria chronic [Unknown]
  - Arrhythmia [Unknown]
  - Thrombosis [Not Recovered/Not Resolved]
  - Blood pressure inadequately controlled [Recovered/Resolved]

NARRATIVE: CASE EVENT DATE: 1999
